FAERS Safety Report 10219681 (Version 1)
Quarter: 2014Q2

REPORT INFORMATION
  Report Type: Spontaneous
  Country: BR (occurrence: BR)
  Receive Date: 20140605
  Receipt Date: 20140605
  Transmission Date: 20141212
  Serious: Yes (Other)
  Sender: FDA-Public Use
  Company Number: BR-GLAXOSMITHKLINE-A1075873A

PATIENT
  Age: 48 Year
  Sex: Female
  Weight: 85 kg

DRUGS (4)
  1. NIQUITIN 21MG [Suspect]
     Indication: SMOKING CESSATION THERAPY
     Route: 062
     Dates: start: 20140516, end: 20140528
  2. DIAZEPAM [Concomitant]
     Indication: ANXIETY
  3. BUPROPION [Concomitant]
     Indication: WEIGHT DECREASED
  4. NALTREXONE [Concomitant]
     Indication: WEIGHT DECREASED

REACTIONS (5)
  - Convulsion [Not Recovered/Not Resolved]
  - Dizziness [Recovering/Resolving]
  - Paraesthesia oral [Recovering/Resolving]
  - Neck pain [Not Recovered/Not Resolved]
  - Adverse event [Unknown]
